FAERS Safety Report 10078745 (Version 1)
Quarter: 2014Q2

REPORT INFORMATION
  Report Type: Spontaneous
  Country: US (occurrence: None)
  Receive Date: 20140414
  Receipt Date: 20140414
  Transmission Date: 20141212
  Serious: Yes (Hospitalization)
  Sender: FDA-Public Use
  Company Number: None

PATIENT
  Age: 48 Year
  Sex: Female
  Weight: 51.9 kg

DRUGS (2)
  1. CARBOPLATIN [Suspect]
  2. CISPLATIN [Suspect]

REACTIONS (1)
  - General physical health deterioration [None]
